FAERS Safety Report 23417166 (Version 1)
Quarter: 2024Q1

REPORT INFORMATION
  Report Type: Spontaneous
  Country: CN (occurrence: CN)
  Receive Date: 20240118
  Receipt Date: 20240118
  Transmission Date: 20240409
  Serious: Yes (Other)
  Sender: FDA-Public Use
  Company Number: CN-PFIZER INC-PV202400004717

PATIENT
  Age: 55 Year
  Sex: Female
  Weight: 66.5 kg

DRUGS (3)
  1. EPIRUBICIN [Suspect]
     Active Substance: EPIRUBICIN
     Indication: Breast cancer
     Dosage: 160 MG, 1X/DAY
     Route: 041
     Dates: start: 20231231, end: 20231231
  2. EPIRUBICIN [Suspect]
     Active Substance: EPIRUBICIN
     Indication: Hormone receptor positive breast cancer
  3. SODIUM CHLORIDE [Concomitant]
     Active Substance: SODIUM CHLORIDE
     Indication: Vehicle solution use
     Dosage: 100 ML, 1X/DAY
     Route: 041
     Dates: start: 20231231, end: 20231231

REACTIONS (1)
  - Hepatic function abnormal [Unknown]

NARRATIVE: CASE EVENT DATE: 20240106
